FAERS Safety Report 7301916-9 (Version None)
Quarter: 2011Q1

REPORT INFORMATION
  Report Type: 
  Country: None (occurrence: None)
  Receive Date: 20110218
  Receipt Date: 20110211
  Transmission Date: 20110831
  Serious: Yes (Life-Threatening, Hospitalization)
  Sender: FDA-Public Use
  Company Number: FR-ROCHE-758994

PATIENT
  Sex: Male
  Weight: 61 kg

DRUGS (1)
  1. METHOXY POLYETHYLENE GLYCOL-EPOETIN BETA [Suspect]
     Dosage: DOSE 360 'MG'
     Route: 042
     Dates: start: 20100719

REACTIONS (3)
  - CHEST PAIN [None]
  - ILL-DEFINED DISORDER [None]
  - ARTHRITIS ENTEROPATHIC [None]
